FAERS Safety Report 17140597 (Version 1)
Quarter: 2019Q4

REPORT INFORMATION
  Report Type: Spontaneous
  Country: US (occurrence: US)
  Receive Date: 20191211
  Receipt Date: 20191211
  Transmission Date: 20200122
  Serious: Yes (Death, Other)
  Sender: FDA-Public Use
  Company Number: NVSC2019US064752

PATIENT
  Age: 61 Year
  Sex: Female

DRUGS (2)
  1. DILTIAZEM. [Suspect]
     Active Substance: DILTIAZEM
     Indication: PRODUCT USED FOR UNKNOWN INDICATION
     Dosage: UNK
     Route: 065
  2. FLUOXETINE [Suspect]
     Active Substance: FLUOXETINE HYDROCHLORIDE
     Indication: PRODUCT USED FOR UNKNOWN INDICATION
     Dosage: UNK
     Route: 065

REACTIONS (8)
  - Depressed level of consciousness [Unknown]
  - Hypotension [Unknown]
  - Bradycardia [Unknown]
  - Seizure [Unknown]
  - Hypertension [Unknown]
  - Tachycardia [Unknown]
  - Metabolic acidosis [Unknown]
  - Toxicity to various agents [Fatal]
